FAERS Safety Report 6723284-3 (Version None)
Quarter: 2010Q2

REPORT INFORMATION
  Report Type: 
  Country: None (occurrence: None)
  Receive Date: 20100511
  Receipt Date: 20100430
  Transmission Date: 20101027
  Serious: Yes (Hospitalization)
  Sender: FDA-Public Use
  Company Number: THQ2010A01242

PATIENT
  Age: 73 Year
  Sex: Male

DRUGS (9)
  1. LANSOPRAZOLE (LANSOPRIZOLE) [Suspect]
     Dates: start: 20100212
  2. KANEXA (RANOLAZINE) [Suspect]
     Dosage: 750 MG (375 MG)
     Route: 048
     Dates: start: 20100212
  3. BISOPROLOL [Concomitant]
  4. FUROSEMIDE [Concomitant]
  5. IMDUR [Concomitant]
  6. LISINOPRIL [Concomitant]
  7. NICORANDIL [Concomitant]
  8. NOVOMIX (INSULIN ASPART) [Concomitant]
  9. PERSANTIN [Concomitant]

REACTIONS (1)
  - VASCULITIC RASH [None]
